FAERS Safety Report 4810561-6 (Version None)
Quarter: 2005Q4

REPORT INFORMATION
  Report Type: 
  Country: None (occurrence: None)
  Receive Date: 20051025
  Receipt Date: 20051025
  Transmission Date: 20060501
  Serious: Yes (Hospitalization)
  Sender: FDA-Public Use
  Company Number: None

PATIENT
  Sex: Male
  Weight: 50.1678 kg

DRUGS (1)
  1. PIPERACILLIN/TAZOBACTAM 2.25 GM LEDERLE [Suspect]
     Indication: PSEUDOMONAS INFECTION
     Dosage: 2.25 GM Q6H IV
     Route: 042
     Dates: start: 20050802, end: 20050806

REACTIONS (10)
  - ASPIRATION [None]
  - BACTERIAL INFECTION [None]
  - BLOOD CREATININE INCREASED [None]
  - GENERAL NUTRITION DISORDER [None]
  - PNEUMONIA ASPIRATION [None]
  - PSEUDOMONAS INFECTION [None]
  - RASH [None]
  - RESPIRATORY FAILURE [None]
  - STREPTOCOCCAL INFECTION [None]
  - URINARY TRACT INFECTION [None]
